FAERS Safety Report 21705194 (Version 7)
Quarter: 2023Q2

REPORT INFORMATION
  Report Type: Report from Study
  Country: US (occurrence: US)
  Receive Date: 20221209
  Receipt Date: 20230509
  Transmission Date: 20230721
  Serious: No
  Sender: FDA-Public Use
  Company Number: US-002147023-NVSC2022US284261

PATIENT
  Sex: Female

DRUGS (1)
  1. ENTRESTO [Suspect]
     Active Substance: SACUBITRIL\VALSARTAN
     Indication: Product used for unknown indication
     Dosage: 1 DOSAGE FORM, BID
     Route: 048
     Dates: start: 2022

REACTIONS (10)
  - Memory impairment [Unknown]
  - Injury [Unknown]
  - Fall [Unknown]
  - Dysphonia [Unknown]
  - Oedema peripheral [Recovering/Resolving]
  - Throat clearing [Unknown]
  - Balance disorder [Unknown]
  - Hypertension [Unknown]
  - Oxygen saturation decreased [Unknown]
  - Drug ineffective [Unknown]
